FAERS Safety Report 4426329-9 (Version None)
Quarter: 2004Q3

REPORT INFORMATION
  Report Type: 
  Country: None (occurrence: None)
  Receive Date: 20040811
  Receipt Date: 20040802
  Transmission Date: 20050211
  Serious: Yes (Death, Hospitalization)
  Sender: FDA-Public Use
  Company Number: 2004-BP-06515RO

PATIENT
  Age: 72 Year
  Sex: Female

DRUGS (3)
  1. METHOTREXATE [Suspect]
     Indication: RHEUMATOID ARTHRITIS
     Dosage: 4 MG PER WEEK (NR, 1 IN 1 WK)
     Dates: start: 20000701, end: 20020501
  2. PREDNISOLONE OR PREDNISONE (CORTICOSTEROIDS) [Concomitant]
  3. BUCILLAMINE [Concomitant]

REACTIONS (6)
  - ARTHRALGIA [None]
  - HEPATIC NECROSIS [None]
  - HEPATITIS B [None]
  - HEPATITIS FULMINANT [None]
  - JOINT SWELLING [None]
  - PNEUMONIA FUNGAL [None]
